FAERS Safety Report 10424113 (Version 3)
Quarter: 2014Q4

REPORT INFORMATION
  Report Type: Spontaneous
  Country: US (occurrence: None)
  Receive Date: 20140722
  Receipt Date: 20141208
  Transmission Date: 20150528
  Serious: Yes (Other)
  Sender: FDA-Public Use
  Company Number: AEGR000464

PATIENT
  Age: 66 Year
  Sex: Male
  Weight: 74.8 kg

DRUGS (14)
  1. CARVEDILOL (CARVEDILOL) [Concomitant]
     Active Substance: CARVEDILOL
  2. RANEXA [Suspect]
     Active Substance: RANOLAZINE
     Indication: PRODUCT USED FOR UNKNOWN INDICATION
     Route: 048
     Dates: start: 201403
  3. PANTOPRAZOLE (PANTOPRAZOLE SODIUM SESQUIHYDRATE) [Concomitant]
  4. FLUOXETINE [Concomitant]
     Active Substance: FLUOXETINE\FLUOXETINE HYDROCHLORIDE
  5. CLOPIDOGREL BISULFATE (CLOPIDOGREL BISULFATE) [Concomitant]
  6. PROZAC [Concomitant]
     Active Substance: FLUOXETINE HYDROCHLORIDE
  7. JUXTAPID [Suspect]
     Active Substance: LOMITAPIDE MESYLATE
     Indication: CORONARY ARTERY DISEASE
     Dosage: 5 MG, QHS, ORAL
     Route: 048
     Dates: start: 201403, end: 201405
  8. CLONAZEPAM (CLONAZEPAM) [Concomitant]
  9. ASPIRIN (ACETYLSALICYLIC ACID) [Concomitant]
     Active Substance: ASPIRIN
  10. MULTIVITAMIN (VITAMINS NOS) [Concomitant]
     Active Substance: VITAMINS
  11. FISH OIL (FISH OIL) [Concomitant]
     Active Substance: FISH OIL
  12. NITROGLYCERIN (GLYCERYL TRINITRATE) [Concomitant]
  13. ISOSORBIDE DINITRATE (ISOSORBIDE DINITRATE) [Concomitant]
  14. JUXTAPID [Suspect]
     Active Substance: LOMITAPIDE MESYLATE
     Indication: TYPE IIA HYPERLIPIDAEMIA
     Dosage: 5 MG, QHS, ORAL
     Route: 048
     Dates: start: 201403, end: 201405

REACTIONS (10)
  - Flatulence [None]
  - Pituitary tumour benign [None]
  - Hypercholesterolaemia [None]
  - Inappropriate schedule of drug administration [None]
  - Nausea [None]
  - Fatigue [None]
  - Headache [None]
  - Diarrhoea [None]
  - Off label use [None]
  - Abdominal discomfort [None]

NARRATIVE: CASE EVENT DATE: 20140218
